FAERS Safety Report 8046278-7 (Version None)
Quarter: 2012Q1

REPORT INFORMATION
  Report Type: 
  Country: None (occurrence: None)
  Receive Date: 20120113
  Receipt Date: 20120109
  Transmission Date: 20120608
  Serious: Yes (Death, Other)
  Sender: FDA-Public Use
  Company Number: PHHY2012US001729

PATIENT
  Age: 69 Year
  Sex: Male

DRUGS (2)
  1. ETOPOSIDE [Concomitant]
     Dosage: 150 MG, UNK
  2. CARBOPLATIN [Suspect]
     Dosage: 370 MG, UNK

REACTIONS (4)
  - TACHYCARDIA [None]
  - DYSPNOEA [None]
  - DIZZINESS [None]
  - ATRIAL FLUTTER [None]
